FAERS Safety Report 10885530 (Version 1)
Quarter: 2015Q1

REPORT INFORMATION
  Report Type: Spontaneous
  Country: US (occurrence: US)
  Receive Date: 20150304
  Receipt Date: 20150304
  Transmission Date: 20150721
  Serious: Yes (Congenital Anomaly, Other)
  Sender: FDA-Public Use
  Company Number: US-APOTEX-2015AP007110

PATIENT
  Sex: Male

DRUGS (1)
  1. PAXIL [Suspect]
     Active Substance: PAROXETINE HYDROCHLORIDE
     Indication: PRODUCT USED FOR UNKNOWN INDICATION
     Dosage: 20 MG, QD
     Route: 064

REACTIONS (17)
  - Oedema genital [Unknown]
  - Neurogenic bladder [Unknown]
  - Epididymitis [Unknown]
  - Cellulitis [Unknown]
  - Congenital large intestinal atresia [Unknown]
  - Hydronephrosis [Unknown]
  - Foetal exposure during pregnancy [Unknown]
  - Orchitis [Unknown]
  - Urinary tract infection [Unknown]
  - Spina bifida [Unknown]
  - Escherichia infection [Unknown]
  - Amblyopia [Unknown]
  - Lice infestation [Unknown]
  - Furuncle [Unknown]
  - Vesicoureteric reflux [Unknown]
  - Cleft palate [Unknown]
  - Learning disorder [Unknown]

NARRATIVE: CASE EVENT DATE: 20060106
